FAERS Safety Report 10038894 (Version 1)
Quarter: 2014Q1

REPORT INFORMATION
  Report Type: Spontaneous
  Country: US (occurrence: None)
  Receive Date: 20140306
  Receipt Date: 20140306
  Transmission Date: 20141002
  Serious: Yes (Other)
  Sender: FDA-Public Use
  Company Number: 163-21880-13052526

PATIENT
  Age: 59 Year
  Sex: Female
  Weight: 65.32 kg

DRUGS (10)
  1. REVLIMID (LENALIDOMIDE) (CAPSULES) [Suspect]
     Indication: MYELODYSPLASTIC SYNDROME
     Dosage: 5 MG, 1 IN 1 D, PO
     Route: 048
     Dates: start: 201304
  2. ALPRAZOLAM (ALPRAZOLAM) [Concomitant]
  3. PROMACTA (ELTROMBOPAG OLAMINE) UNKNOWN? [Concomitant]
  4. PREDNISONE (PREDNISONE) (UNKNOWN) [Concomitant]
  5. NORVASC (AMLODIPINE BESILATE) (UNKNOWN) [Concomitant]
  6. CARVEDILOL (CARVEDILOL) (UNKNOWN) [Concomitant]
  7. PRENATAL VITAMINS (PRENATAL VITAMINS) (TABLETS) [Concomitant]
  8. RANITIDINE (RANITIDINE) (UNKNOWN) [Concomitant]
  9. VITAMIN B12 (CYANOCOBALAMIN) (UNKNOWN) [Concomitant]
  10. IRON (IRON) (UNKNOWN) [Concomitant]

REACTIONS (5)
  - Full blood count decreased [None]
  - White blood cell count decreased [None]
  - Neutrophil count decreased [None]
  - Nausea [None]
  - Vomiting [None]
